FAERS Safety Report 4618641-5 (Version None)
Quarter: 2005Q1

REPORT INFORMATION
  Report Type: 
  Country: None (occurrence: None)
  Receive Date: 20050323
  Receipt Date: 20050307
  Transmission Date: 20050727
  Serious: No
  Sender: FDA-Public Use
  Company Number: 050024

PATIENT
  Age: 40 Year
  Sex: Female

DRUGS (1)
  1. CHERRY FLAVOR NULYTELY [Suspect]

REACTIONS (8)
  - ABDOMINAL PAIN [None]
  - BLOOD TEST ABNORMAL [None]
  - DEHYDRATION [None]
  - FATIGUE [None]
  - HEART RATE DECREASED [None]
  - HEART RATE IRREGULAR [None]
  - LIPASE INCREASED [None]
  - SKIN ODOUR ABNORMAL [None]
